FAERS Safety Report 8608294-3 (Version None)
Quarter: 2012Q3

REPORT INFORMATION
  Report Type: 
  Country: None (occurrence: None)
  Receive Date: 20120821
  Receipt Date: 20120813
  Transmission Date: 20120928
  Serious: Yes (Hospitalization)
  Sender: FDA-Public Use
  Company Number: RO-ABBOTT-12P-135-0956152-00

PATIENT
  Sex: Female
  Weight: 55 kg

DRUGS (8)
  1. SPIRONOLACTONE [Concomitant]
     Indication: HYPOKALAEMIA
     Route: 048
     Dates: start: 20030615
  2. FUROSEMIDE [Concomitant]
     Indication: FLUID RETENTION
     Dosage: EVERY OTHER DAY
     Route: 048
     Dates: start: 20110927
  3. ALLOPURINOL [Concomitant]
     Indication: HYPERURICAEMIA
     Route: 048
     Dates: start: 20021115
  4. ZEMPLAR [Suspect]
     Indication: HYPERPARATHYROIDISM SECONDARY
     Route: 048
     Dates: start: 20110927
  5. SODIUM BICARBONATE [Concomitant]
     Indication: METABOLIC ACIDOSIS
     Route: 048
     Dates: start: 20110923
  6. COZAAR [Concomitant]
     Indication: HYPERTENSION
     Route: 048
     Dates: start: 20021116
  7. ATORVASTATIN [Concomitant]
     Indication: DYSLIPIDAEMIA
     Route: 048
     Dates: start: 20110920
  8. DILTIAZEM [Concomitant]
     Indication: SECONDARY HYPERTENSION
     Route: 048
     Dates: start: 20120409

REACTIONS (2)
  - OEDEMATOUS PANCREATITIS [None]
  - RENAL HYPERTENSION [None]
